FAERS Safety Report 16805631 (Version 2)
Quarter: 2019Q4

REPORT INFORMATION
  Report Type: Spontaneous
  Country: US (occurrence: US)
  Receive Date: 20190913
  Receipt Date: 20191011
  Transmission Date: 20200122
  Serious: No
  Sender: FDA-Public Use
  Company Number: US-ASTRAZENECA-2019SF25407

PATIENT
  Sex: Female

DRUGS (4)
  1. ANNUITY [Concomitant]
  2. ANORO ELLIPTA [Concomitant]
     Active Substance: UMECLIDINIUM BROMIDE\VILANTEROL TRIFENATATE
  3. PULMICORT FLEXHALER [Suspect]
     Active Substance: BUDESONIDE
     Indication: ASTHMA
     Route: 055
  4. BREO ELLIPTA [Concomitant]
     Active Substance: FLUTICASONE FUROATE\VILANTEROL TRIFENATATE

REACTIONS (7)
  - Palpitations [Unknown]
  - Dyspnoea [Not Recovered/Not Resolved]
  - Cough [Unknown]
  - Device failure [Unknown]
  - Drug hypersensitivity [Unknown]
  - Productive cough [Unknown]
  - Device ineffective [Unknown]
